FAERS Safety Report 14076982 (Version 2)
Quarter: 2017Q4

REPORT INFORMATION
  Report Type: Spontaneous
  Country: US (occurrence: US)
  Receive Date: 20171011
  Receipt Date: 20171025
  Transmission Date: 20180321
  Serious: Yes (Hospitalization)
  Sender: FDA-Public Use
  Company Number: US-BEH-2017084167

PATIENT
  Age: 22 Year
  Sex: Male
  Weight: 69.84 kg

DRUGS (4)
  1. BERINERT [Suspect]
     Active Substance: HUMAN C1-ESTERASE INHIBITOR
     Indication: HEREDITARY ANGIOEDEMA
     Dosage: 1000 IU, EVERY 3-4 DAYS
     Route: 042
     Dates: start: 20170927
  2. SODIUM CHLORIDE. [Concomitant]
     Active Substance: SODIUM CHLORIDE
  3. EPINEPHRINE. [Concomitant]
     Active Substance: EPINEPHRINE
  4. BERINERT [Suspect]
     Active Substance: HUMAN C1-ESTERASE INHIBITOR
     Indication: PROPHYLAXIS
     Dosage: UNK
     Route: 042

REACTIONS (1)
  - Hereditary angioedema [Recovered/Resolved]

NARRATIVE: CASE EVENT DATE: 201709
